FAERS Safety Report 4981667-6 (Version None)
Quarter: 2006Q2

REPORT INFORMATION
  Report Type: 
  Country: None (occurrence: None)
  Receive Date: 20060425
  Receipt Date: 20060216
  Transmission Date: 20061013
  Serious: No
  Sender: FDA-Public Use
  Company Number: US-GLAXOSMITHKLINE-A0593992A

PATIENT
  Age: 49 Year
  Sex: Male

DRUGS (5)
  1. LEXIVA [Suspect]
     Indication: HIV INFECTION
     Dosage: 700MG TWICE PER DAY
     Route: 048
     Dates: start: 20060213
  2. TRUVADA [Concomitant]
  3. VITAMINS [Concomitant]
  4. TOPROL-XL [Concomitant]
  5. LEXAPRO [Concomitant]

REACTIONS (2)
  - DIZZINESS [None]
  - NAUSEA [None]
